FAERS Safety Report 25509060 (Version 2)
Quarter: 2025Q3

REPORT INFORMATION
  Report Type: Spontaneous
  Country: US (occurrence: US)
  Receive Date: 20250703
  Receipt Date: 20250814
  Transmission Date: 20251021
  Serious: Yes (Disabling, Other)
  Sender: REGENERON
  Company Number: US-REGENERON PHARMACEUTICALS, INC.-2025-099658

PATIENT
  Sex: Female

DRUGS (19)
  1. EYLEA [Suspect]
     Active Substance: AFLIBERCEPT
     Indication: Neovascular age-related macular degeneration
  2. EYLEA [Suspect]
     Active Substance: AFLIBERCEPT
     Indication: Choroidal neovascularisation
     Dates: start: 20240909
  3. EYLEA [Suspect]
     Active Substance: AFLIBERCEPT
     Dosage: 2 MG, Q12W, INTO RIGHT EYE, (STRENGTH: 2MG/0.05ML FORMULATION: PFS (GERRESHEIMER))
     Dates: end: 20250505
  4. AVASTIN [Concomitant]
     Active Substance: BEVACIZUMAB
     Indication: Product used for unknown indication
  5. PROPARACAINE [Concomitant]
     Active Substance: PROPARACAINE
     Indication: Product used for unknown indication
  6. LIDOCAINE [Concomitant]
     Active Substance: LIDOCAINE
     Indication: Product used for unknown indication
  7. EPINEPHRINE [Concomitant]
     Active Substance: EPINEPHRINE
     Indication: Product used for unknown indication
  8. BETADINE [Concomitant]
     Active Substance: POVIDONE-IODINE
     Indication: Product used for unknown indication
  9. KETOROLAC [Concomitant]
     Active Substance: KETOROLAC TROMETHAMINE
     Indication: Product used for unknown indication
  10. TYLENOL [Concomitant]
     Active Substance: ACETAMINOPHEN
     Indication: Product used for unknown indication
     Dosage: 1000 MG, Q8H (2 TABLETS OF 500 MG)
     Route: 048
  11. CHOLECALCIFEROL [Concomitant]
     Active Substance: CHOLECALCIFEROL
     Indication: Product used for unknown indication
     Dosage: 2000 UNITS, QD, EMPTY STOMACH AT 0700
     Route: 048
  12. DEXLANSOPRAZOLE DELAYED RELEASE [Concomitant]
     Active Substance: DEXLANSOPRAZOLE
     Indication: Product used for unknown indication
     Dosage: 60 MG, QD (EVERY MORNING)
     Route: 048
     Dates: start: 20250325
  13. ICAPS AREDS FORMULA [Concomitant]
     Indication: Product used for unknown indication
     Dosage: 2 {DF}, CAPSULES (MORNING)
     Route: 048
  14. ZOFRAN [Concomitant]
     Active Substance: ONDANSETRON HYDROCHLORIDE
     Indication: Nausea
     Dosage: 4 MG, Q8H (AS NEEDED)
     Route: 048
     Dates: start: 20240620, end: 20250516
  15. MIRALAX [Concomitant]
     Active Substance: POLYETHYLENE GLYCOL 3350
     Indication: Product used for unknown indication
     Dosage: 17 G, QD
     Route: 048
     Dates: start: 20210813
  16. IMITREX [Concomitant]
     Active Substance: SUMATRIPTAN SUCCINATE
     Indication: Product used for unknown indication
     Dosage: 50 MG, QD (AS NEEDED)
     Route: 048
     Dates: start: 20210608, end: 20250516
  17. CROMOLYN SODIUM [Concomitant]
     Active Substance: CROMOLYN SODIUM
     Indication: Rhinitis allergic
  18. ILOTYCIN [ERYTHROMYCIN] [Concomitant]
     Indication: Product used for unknown indication
     Dates: start: 20250508
  19. HYPOCHLOROUS ACID [Concomitant]
     Active Substance: HYPOCHLOROUS ACID
     Indication: Product used for unknown indication

REACTIONS (16)
  - Sudden visual loss [Recovered/Resolved]
  - Blindness unilateral [Not Recovered/Not Resolved]
  - Hallucination, visual [Unknown]
  - Syncope [Unknown]
  - Corneal dystrophy [Unknown]
  - Retinal haemorrhage [Unknown]
  - Endophthalmitis [Recovered/Resolved with Sequelae]
  - Cataract [Unknown]
  - Vitreous detachment [Unknown]
  - Intraocular pressure increased [Recovered/Resolved]
  - Blepharitis [Unknown]
  - Nausea [Recovering/Resolving]
  - Vomiting [Recovering/Resolving]
  - Fall [Unknown]
  - Vertigo [Unknown]
  - Eye pain [Recovering/Resolving]

NARRATIVE: CASE EVENT DATE: 20210501
